FAERS Safety Report 6896538-8 (Version None)
Quarter: 2010Q3

REPORT INFORMATION
  Report Type: 
  Country: None (occurrence: None)
  Receive Date: 20100802
  Receipt Date: 20100728
  Transmission Date: 20110219
  Serious: Yes (Death)
  Sender: FDA-Public Use
  Company Number: PHHY2010US48400

PATIENT
  Sex: Female
  Weight: 87.846 kg

DRUGS (4)
  1. ZOMETA [Suspect]
     Indication: BREAST CANCER
     Dosage: 4 MG (OF 4 MG/5 ML), DAILY
     Route: 042
     Dates: start: 20091030
  2. AROMASIN [Concomitant]
     Indication: BREAST CANCER FEMALE
     Dosage: 25 MG, UNK
     Route: 048
     Dates: start: 20100108
  3. DEXAMETHASONE SODIUM PHOSPHATE [Concomitant]
     Indication: NAUSEA
     Dosage: 20 MG, UNK
     Route: 042
     Dates: start: 20090810
  4. CHEMOTHERAPEUTICS NOS [Concomitant]

REACTIONS (1)
  - DEATH [None]
